FAERS Safety Report 11360052 (Version 2)
Quarter: 2015Q3

REPORT INFORMATION
  Report Type: Spontaneous
  Country: IT (occurrence: IT)
  Receive Date: 20150810
  Receipt Date: 20150814
  Transmission Date: 20151125
  Serious: Yes (Hospitalization)
  Sender: FDA-Public Use
  Company Number: IT-ROCHE-1618621

PATIENT
  Age: 49 Year
  Sex: Female

DRUGS (3)
  1. RIVOTRIL [Suspect]
     Active Substance: CLONAZEPAM
     Indication: INTENTIONAL SELF-INJURY
     Dosage: 2.5 MG/ML ORAL DROPS, SOLUTION-10 ML BOTTLE
     Route: 048
     Dates: start: 20150729, end: 20150729
  2. DEPAKIN [Concomitant]
     Active Substance: VALPROATE SODIUM
     Dosage: 500 MG- 40 TABLETS IN AL/AL BLISTER PACK, GASTRO-RESISTANT TABLETS
     Route: 048
  3. RISPERDAL [Concomitant]
     Active Substance: RISPERIDONE
     Dosage: 4 MG FILM-COATED TABLETS-60 TABLETS
     Route: 048

REACTIONS (3)
  - Drug abuse [Unknown]
  - Catatonia [Unknown]
  - Bradyphrenia [Unknown]

NARRATIVE: CASE EVENT DATE: 20150729
